FAERS Safety Report 9015647 (Version 1)
Quarter: 2013Q1

REPORT INFORMATION
  Report Type: Spontaneous
  Country: US (occurrence: US)
  Receive Date: 20130116
  Receipt Date: 20130116
  Transmission Date: 20140127
  Serious: Yes (Life-Threatening)
  Sender: FDA-Public Use
  Company Number: US-009507513-1301USA004097

PATIENT
  Sex: Male

DRUGS (6)
  1. SINGULAIR [Suspect]
     Indication: ASTHMA
     Dosage: 10 MG, UNK
  2. XOLAIR [Suspect]
     Indication: ASTHMA
     Dosage: 300 MG, Q2W
     Route: 058
  3. NEXIUM [Concomitant]
     Indication: GASTROOESOPHAGEAL REFLUX DISEASE
     Dosage: 40 MG, QD
     Route: 048
  4. XOPENEX [Concomitant]
     Dosage: UNK UNK, QD
  5. SYMBICORT [Concomitant]
     Dosage: 2 PUFFS BID
     Route: 055
  6. NASONEX [Concomitant]
     Indication: RHINITIS ALLERGIC
     Dosage: 4 PUFFS, QD
     Route: 055

REACTIONS (1)
  - Angioedema [Unknown]
